FAERS Safety Report 4478019-4 (Version None)
Quarter: 2004Q3

REPORT INFORMATION
  Report Type: 
  Country: None (occurrence: None)
  Receive Date: 20040923
  Receipt Date: 20040809
  Transmission Date: 20050211
  Serious: No
  Sender: FDA-Public Use
  Company Number: USA040874422

PATIENT
  Age: 81 Year
  Sex: Female

DRUGS (10)
  1. FORTEO [Suspect]
     Indication: OSTEOPOROSIS
     Dosage: 20 UG DAY
     Dates: start: 20040601, end: 20040725
  2. PREDNISONE [Concomitant]
  3. ASACOL [Concomitant]
  4. TRAMADOL HCL [Concomitant]
  5. AZATHIOPRINE [Concomitant]
  6. LORAZEPAM [Concomitant]
  7. METOPROLOL [Concomitant]
  8. DICYCLOMINE [Concomitant]
  9. PREMANDOL [Concomitant]
  10. DIPYRIDAMOLE [Concomitant]

REACTIONS (13)
  - ARTHRALGIA [None]
  - COCCYDYNIA [None]
  - DEPRESSION [None]
  - DIFFICULTY IN WALKING [None]
  - DIZZINESS [None]
  - FEELING ABNORMAL [None]
  - HEADACHE [None]
  - HYPOAESTHESIA [None]
  - JOINT SWELLING [None]
  - OEDEMA PERIPHERAL [None]
  - PAIN [None]
  - PAIN IN EXTREMITY [None]
  - VERTIGO [None]
